FAERS Safety Report 5634155-8 (Version None)
Quarter: 2008Q1

REPORT INFORMATION
  Report Type: 
  Country: None (occurrence: None)
  Receive Date: 20080131
  Receipt Date: 20071003
  Transmission Date: 20080703
  Serious: Yes (Hospitalization)
  Sender: FDA-Public Use
  Company Number: 151436USA

PATIENT
  Age: 38 Year
  Sex: Male

DRUGS (2)
  1. COPAXONE [Suspect]
     Dosage: (20 MG), SUBCUTANEOUS
     Route: 058
     Dates: start: 20041201
  2. INTERFERON BETA [Suspect]

REACTIONS (1)
  - CEREBROVASCULAR ACCIDENT [None]
